FAERS Safety Report 10400646 (Version 1)
Quarter: 2014Q3

REPORT INFORMATION
  Report Type: Spontaneous
  Country: US (occurrence: US)
  Receive Date: 20140821
  Receipt Date: 20140821
  Transmission Date: 20150326
  Serious: No
  Sender: FDA-Public Use
  Company Number: US-ASTRAZENECA-2014SE07494

PATIENT
  Age: 72 Year
  Sex: Female
  Weight: 62.6 kg

DRUGS (7)
  1. ALBUTEROL-NEBULIZER [Concomitant]
     Dosage: NOT ASKED PRN
     Route: 050
  2. ADVAIR HFA [Concomitant]
     Active Substance: FLUTICASONE PROPIONATE\SALMETEROL XINAFOATE
     Indication: ASTHMA
     Dosage: UNKNOWN
     Route: 055
  3. STEROIDS [Concomitant]
     Active Substance: UNSPECIFIED INGREDIENT
     Indication: BRONCHITIS
     Dosage: UNKNOWN
  4. VENTOLIN [Concomitant]
     Active Substance: ALBUTEROL SULFATE
     Indication: RESPIRATORY DISORDER
     Dosage: NOT ASKED PRN
     Route: 055
  5. TELESON PEARLS [Concomitant]
     Indication: BRONCHITIS
     Dosage: UNKNOWN
  6. SYMBICORT [Suspect]
     Active Substance: BUDESONIDE\FORMOTEROL FUMARATE DIHYDRATE
     Indication: ASTHMA
     Dosage: 160/4.5 MCG 2 PUFFS BID
     Route: 055
     Dates: start: 2010
  7. PROCARE [Concomitant]
     Indication: RESPIRATORY DISORDER
     Dosage: UNKNOWN
     Route: 055

REACTIONS (6)
  - Bronchitis [Unknown]
  - Intentional product misuse [Unknown]
  - Intentional product misuse [Not Recovered/Not Resolved]
  - Dyspnoea [Not Recovered/Not Resolved]
  - Feeling jittery [Not Recovered/Not Resolved]
  - Malaise [Not Recovered/Not Resolved]

NARRATIVE: CASE EVENT DATE: 201401
